FAERS Safety Report 14283890 (Version 1)
Quarter: 2017Q4

REPORT INFORMATION
  Report Type: Spontaneous
  Country: US (occurrence: US)
  Receive Date: 20171213
  Receipt Date: 20171213
  Transmission Date: 20180321
  Serious: No
  Sender: FDA-Public Use
  Company Number: None

PATIENT
  Age: 54 Year
  Sex: Female
  Weight: 72 kg

DRUGS (2)
  1. VALSARTAN. [Concomitant]
     Active Substance: VALSARTAN
  2. OSELTAMIVIR PHOSPHATE CAPSULES USP, 75MG [Suspect]
     Active Substance: OSELTAMIVIR PHOSPHATE
     Indication: INFLUENZA
     Dosage: ?          QUANTITY:10 CAPSULE(S);?
     Route: 048
     Dates: start: 20171201, end: 20171202

REACTIONS (6)
  - Nausea [None]
  - Asthenia [None]
  - Feeling cold [None]
  - Gait inability [None]
  - Headache [None]
  - Malaise [None]

NARRATIVE: CASE EVENT DATE: 20171201
